FAERS Safety Report 8121012-0 (Version None)
Quarter: 2012Q1

REPORT INFORMATION
  Report Type: 
  Country: None (occurrence: None)
  Receive Date: 20120203
  Receipt Date: 20120118
  Transmission Date: 20120608
  Serious: Yes (Death)
  Sender: FDA-Public Use
  Company Number: 2012BN000046

PATIENT
  Age: 66 Year
  Sex: Female

DRUGS (1)
  1. MELPHALAN HYDROCHLORIDE [Suspect]
     Indication: MALIGNANT MELANOMA
     Dosage: 10 MG/L;IART 5 MG/ML;IART
     Route: 014

REACTIONS (2)
  - ACUTE RESPIRATORY DISTRESS SYNDROME [None]
  - UNEVALUABLE EVENT [None]
